FAERS Safety Report 12425430 (Version 1)
Quarter: 2016Q2

REPORT INFORMATION
  Report Type: Spontaneous
  Country: US (occurrence: US)
  Receive Date: 20160601
  Receipt Date: 20160601
  Transmission Date: 20160815
  Serious: No
  Sender: FDA-Public Use
  Company Number: US-PFIZER INC-2016271746

PATIENT
  Age: 83 Year
  Sex: Female

DRUGS (1)
  1. LATANOPROST. [Suspect]
     Active Substance: LATANOPROST
     Dosage: UNK, UNK
     Route: 047

REACTIONS (2)
  - Drug intolerance [Recovered/Resolved]
  - Ocular hyperaemia [Recovered/Resolved]
